FAERS Safety Report 8383299-9 (Version None)
Quarter: 2012Q2

REPORT INFORMATION
  Report Type: 
  Country: None (occurrence: None)
  Receive Date: 20120524
  Receipt Date: 20120521
  Transmission Date: 20120825
  Serious: Yes (Hospitalization)
  Sender: FDA-Public Use
  Company Number: US-AMGEN-USASP2012022621

PATIENT
  Age: 60 Year
  Sex: Female

DRUGS (2)
  1. METHOTREXATE [Concomitant]
     Dosage: UNK
  2. ENBREL [Suspect]
     Indication: RHEUMATOID ARTHRITIS
     Dosage: 50 MG, QWK
     Dates: start: 20110715, end: 20111001

REACTIONS (6)
  - STOMATITIS [None]
  - SEPSIS [None]
  - INFLUENZA LIKE ILLNESS [None]
  - ABDOMINAL WALL CYST [None]
  - LOCALISED INFECTION [None]
  - RHEUMATOID ARTHRITIS [None]
